FAERS Safety Report 7108002-1 (Version None)
Quarter: 2010Q4

REPORT INFORMATION
  Report Type: 
  Country: None (occurrence: None)
  Receive Date: 20101105
  Receipt Date: 20101102
  Transmission Date: 20110411
  Serious: Yes (Other)
  Sender: FDA-Public Use
  Company Number: A0886691A

PATIENT
  Age: 44 Year
  Sex: Female

DRUGS (15)
  1. ASPIRIN + CAFFEINE + SALICYLAMIDE (FORMULATION UNKNOWN) (ASPIRIN+CAFFE [Suspect]
     Dosage: VARIABLE DOSE / ORAL
     Route: 048
  2. PANTOPRAZOLE [Concomitant]
  3. UNK STOMACH MEDICATION [Concomitant]
  4. OMEPRAZOLE [Concomitant]
  5. HCLTHIAZIDE+LISINOPRIL [Concomitant]
  6. CLONIDINE [Concomitant]
  7. METOPROLOL [Concomitant]
  8. PAROXETINE HYDROCHLORIDE [Concomitant]
  9. MIRTAZAPINE [Concomitant]
  10. CITALOPRAM HYDROBROMIDE [Concomitant]
  11. LEXAPRO [Concomitant]
  12. AMITRIPTYLINE HC1 [Concomitant]
  13. FLUTICASONE+SALMETEROL [Concomitant]
  14. SLBUTAMOL SULPHATE [Concomitant]
  15. ALPRAZOLAM [Concomitant]

REACTIONS (9)
  - DEPENDENCE [None]
  - DRUG ADMINISTRATION ERROR [None]
  - FEELING ABNORMAL [None]
  - GASTRIC DISORDER [None]
  - GASTRIC HAEMORRHAGE [None]
  - GASTRIC MUCOSAL LESION [None]
  - GASTRIC ULCER [None]
  - GASTROINTESTINAL DISORDER [None]
  - HUNGER [None]
